FAERS Safety Report 8420296-9 (Version None)
Quarter: 2012Q2

REPORT INFORMATION
  Report Type: 
  Country: None (occurrence: None)
  Receive Date: 20120607
  Receipt Date: 20120530
  Transmission Date: 20120825
  Serious: Yes (Other)
  Sender: FDA-Public Use
  Company Number: JP-ABBOTT-10P-087-0618969-00

PATIENT
  Age: 92 Year
  Sex: Male

DRUGS (2)
  1. LINEZOLID [Suspect]
     Indication: STAPHYLOCOCCAL INFECTION
     Route: 042
  2. ERYTHROMYCIN [Suspect]
     Indication: STAPHYLOCOCCAL INFECTION

REACTIONS (2)
  - PANCYTOPENIA [None]
  - DECREASED APPETITE [None]
